FAERS Safety Report 7345317-6 (Version None)
Quarter: 2011Q1

REPORT INFORMATION
  Report Type: 
  Country: None (occurrence: None)
  Receive Date: 20110310
  Receipt Date: 20110304
  Transmission Date: 20110831
  Serious: Yes (Hospitalization, Other)
  Sender: FDA-Public Use
  Company Number: JP-ABBOTT-11P-087-0698060-00

PATIENT
  Age: 11 Year
  Sex: Male
  Weight: 31.9 kg

DRUGS (12)
  1. DOPAMINE HYCROCHLORIDE [Concomitant]
     Indication: GENERAL ANAESTHESIA
     Dosage: DAILY DOSE:3-5MCG/KG/HR
     Dates: start: 20101129, end: 20101129
  2. CHLORPROMAZINE HYDROCHLORIDE [Concomitant]
     Indication: GENERAL ANAESTHESIA
     Route: 042
     Dates: start: 20101129, end: 20101129
  3. METHYLPREDNISOLONE SODIUM SUCCINATE [Concomitant]
     Indication: GENERAL ANAESTHESIA
     Dosage: DAILY DOSE: 1000MG INFUSION DRIP
     Route: 065
     Dates: start: 20101129, end: 20101129
  4. HEPARIN SODIUM [Concomitant]
     Indication: GENERAL ANAESTHESIA
     Dosage: DAILY DOSE: 10000 UNITS INFUSION DRIP
     Route: 065
     Dates: start: 20101129, end: 20101129
  5. PROPOFOL [Suspect]
     Indication: MAINTENANCE OF ANAESTHESIA
     Dosage: DAILY DOSE:3MG/KG/HR INFUSION DRIP
     Dates: start: 20101129, end: 20101129
  6. FENTANYL [Concomitant]
     Indication: GENERAL ANAESTHESIA
     Dosage: DAILY DOSE:450MCG INFUSION DRIP
     Route: 065
     Dates: start: 20101129, end: 20101129
  7. SEVOFLURANE [Suspect]
     Indication: MAINTENANCE OF ANAESTHESIA
     Route: 055
  8. PROTAMINE SULFATE [Concomitant]
     Indication: GENERAL ANAESTHESIA
     Dosage: DAILY DOSE: 10ML
     Route: 042
     Dates: start: 20101129, end: 20101129
  9. MILRINONE [Concomitant]
     Indication: PRODUCT USED FOR UNKNOWN INDICATION
     Route: 065
  10. ROCURONIUM BROMIDE [Concomitant]
     Indication: GENERAL ANAESTHESIA
     Dosage: DAILY DOSE: 7.0MC/KG/MIN
     Route: 042
     Dates: start: 20101129, end: 20101129
  11. REMIFENTANIL HYDROCHLORIDE [Concomitant]
     Indication: MAINTENANCE OF ANAESTHESIA
     Dosage: DAILY DOSE:0.23MCG/KG/MIN INFUSION DRIP
     Dates: start: 20101129, end: 20101129
  12. DEXMEDETOMIDINE HYDROCHLORIDE [Concomitant]
     Indication: GENERAL ANAESTHESIA
     Dosage: DAILY DOSE: 0.7MCG/KG/HR
     Route: 065
     Dates: start: 20101129, end: 20101129

REACTIONS (1)
  - RHABDOMYOLYSIS [None]
